FAERS Safety Report 9853655 (Version 3)
Quarter: 2014Q1

REPORT INFORMATION
  Report Type: Spontaneous
  Country: JP (occurrence: JP)
  Receive Date: 20140129
  Receipt Date: 20140306
  Transmission Date: 20141002
  Serious: No
  Sender: FDA-Public Use
  Company Number: JP-PFIZER INC-2014020214

PATIENT
  Age: 17 Year
  Sex: Female
  Weight: 43.9 kg

DRUGS (9)
  1. REVATIO [Suspect]
     Indication: PULMONARY HYPERTENSION
     Dosage: 45 MG, 3X/DAY
     Route: 048
     Dates: start: 20110322, end: 20130318
  2. BAYASPIRIN [Concomitant]
     Indication: ANTIPLATELET THERAPY
     Dosage: 100 MG, 1X/DAY
     Route: 048
     Dates: start: 20051220
  3. ONON [Concomitant]
     Indication: ASTHMA
     Dosage: 2 DF, 2X/DAY
     Route: 048
     Dates: start: 20051220
  4. TRACLEER [Concomitant]
     Indication: PULMONARY HYPERTENSION
     Dosage: 2 DF, 2X/DAY
     Route: 048
     Dates: start: 20090813, end: 20130318
  5. LASIX [Concomitant]
     Indication: PULMONARY HYPERTENSION
     Dosage: 10 MG, 1X/DAY
     Route: 048
     Dates: start: 20051220
  6. ALDACTONE [Concomitant]
     Indication: PULMONARY HYPERTENSION
     Dosage: 10 MG, 1X/DAY
     Route: 048
     Dates: start: 20051220
  7. SUNRYTHM [Concomitant]
     Indication: ARRHYTHMIA
     Dosage: 25 MG, 1X/DAY
     Route: 048
     Dates: start: 20080324
  8. ASVERIN [Concomitant]
     Indication: ASTHMA
     Dosage: 30 MG, 3X/DAY
     Route: 048
     Dates: start: 20051220
  9. MUCODYNE [Concomitant]
     Indication: ASTHMA
     Dosage: 750 MG, 3X/DAY
     Route: 048
     Dates: start: 20051220

REACTIONS (1)
  - Myalgia [Recovering/Resolving]
